FAERS Safety Report 9932008 (Version 1)
Quarter: 2014Q1

REPORT INFORMATION
  Report Type: Spontaneous
  Country: US (occurrence: US)
  Receive Date: 20140228
  Receipt Date: 20140228
  Transmission Date: 20141002
  Serious: No
  Sender: FDA-Public Use
  Company Number: US-ABBVIE-13P-163-1091716-00

PATIENT
  Age: 66 Year
  Sex: Male
  Weight: 127.12 kg

DRUGS (4)
  1. ANDROGEL [Suspect]
     Indication: BLOOD TESTOSTERONE DECREASED
     Dates: start: 201304
  2. ATIVAN [Concomitant]
     Indication: PRODUCT USED FOR UNKNOWN INDICATION
  3. OXYCODONE [Concomitant]
     Indication: PAIN
  4. AVAPRO [Concomitant]
     Indication: HYPERTENSION

REACTIONS (2)
  - Breast pain [Recovered/Resolved]
  - Nipple pain [Recovered/Resolved]
